FAERS Safety Report 14219944 (Version 4)
Quarter: 2024Q1

REPORT INFORMATION
  Report Type: Spontaneous
  Country: US (occurrence: US)
  Receive Date: 20171123
  Receipt Date: 20240104
  Transmission Date: 20240410
  Serious: Yes (Other)
  Sender: FDA-Public Use
  Company Number: US-JNJFOC-20170919285

PATIENT
  Age: 4 Year
  Sex: Male

DRUGS (11)
  1. RISPERDAL [Suspect]
     Active Substance: RISPERIDONE
     Indication: Autism spectrum disorder
     Route: 048
     Dates: start: 20050809
  2. RISPERDAL [Suspect]
     Active Substance: RISPERIDONE
     Dosage: VARYING DOSE OF 0.5MG AND 1MG
     Route: 048
     Dates: end: 200602
  3. RISPERDAL [Suspect]
     Active Substance: RISPERIDONE
     Dosage: VARYING DOSE OF 0.5MG AND 1MG
     Route: 048
     Dates: end: 200912
  4. RISPERDAL [Suspect]
     Active Substance: RISPERIDONE
     Route: 048
  5. RISPERIDONE [Suspect]
     Active Substance: RISPERIDONE
     Indication: Product used for unknown indication
     Route: 065
     Dates: start: 200508, end: 200912
  6. RISPERDAL M-TAB [Suspect]
     Active Substance: RISPERIDONE
     Indication: Autism spectrum disorder
     Dosage: 1MG IN THE MORNING AND EVENING AND 0.5 MG AT NOON
     Route: 048
     Dates: start: 20050823
  7. RISPERDAL M-TAB [Suspect]
     Active Substance: RISPERIDONE
     Dosage: 1MG THRICE A DAY
     Route: 048
  8. RISPERDAL M-TAB [Suspect]
     Active Substance: RISPERIDONE
     Route: 048
     Dates: end: 20090224
  9. ABILIFY [Suspect]
     Active Substance: ARIPIPRAZOLE
     Indication: Product used for unknown indication
     Route: 065
     Dates: start: 200709, end: 200806
  10. ABILIFY [Suspect]
     Active Substance: ARIPIPRAZOLE
     Route: 065
  11. GEODON [Suspect]
     Active Substance: ZIPRASIDONE HYDROCHLORIDE\ZIPRASIDONE MESYLATE
     Indication: Product used for unknown indication
     Dosage: 40MG/ 60MG
     Route: 065
     Dates: start: 200509, end: 2016

REACTIONS (11)
  - Gynaecomastia [Unknown]
  - Obesity [Unknown]
  - Retching [Recovered/Resolved]
  - Emotional distress [Unknown]
  - Irritability [Unknown]
  - Tic [Recovered/Resolved]
  - Vomiting [Recovered/Resolved]
  - Somnolence [Unknown]
  - Drug ineffective [Unknown]
  - Off label use [Unknown]
  - Off label use [Unknown]

NARRATIVE: CASE EVENT DATE: 20050809
